FAERS Safety Report 21024606 (Version 1)
Quarter: 2022Q2

REPORT INFORMATION
  Report Type: Report from Study
  Country: US (occurrence: US)
  Receive Date: 20220629
  Receipt Date: 20220629
  Transmission Date: 20220720
  Serious: No
  Sender: FDA-Public Use
  Company Number: US-INCYTE CORPORATION-2022IN005115

PATIENT

DRUGS (1)
  1. JAKAFI [Suspect]
     Active Substance: RUXOLITINIB
     Indication: Polycythaemia vera
     Dosage: 12 MILLIGRAM, BID
     Route: 065

REACTIONS (5)
  - Haematocrit increased [Unknown]
  - Haemoglobin increased [Unknown]
  - White blood cell count increased [Unknown]
  - Toxicity to various agents [Unknown]
  - Off label use [Unknown]
